FAERS Safety Report 8406886-8 (Version None)
Quarter: 2012Q2

REPORT INFORMATION
  Report Type: 
  Country: None (occurrence: None)
  Receive Date: 20120529
  Receipt Date: 20041111
  Transmission Date: 20120825
  Serious: Yes (Death, Hospitalization, Other)
  Sender: FDA-Public Use
  Company Number: 02100-JPN-04-0289

PATIENT
  Age: 83 Year
  Sex: Female

DRUGS (16)
  1. NOFLOXACIN (NORFLOXACIN) [Concomitant]
  2. MAXIPIME [Concomitant]
  3. DEPAKENE [Concomitant]
  4. DIGOXIN [Concomitant]
  5. SERMION (NICERGOLINE) [Concomitant]
  6. WARFARIN SODIUM [Concomitant]
  7. CEFZON (CEFDINIR) [Concomitant]
  8. CEPHALEXIN [Concomitant]
  9. PLETAL [Suspect]
     Indication: CEREBRAL INFARCTION
     Dosage: 100 MG, BID, NASAL ; 100 MG, QD, NASAL ; 100 MG, BID, NASAL
     Route: 045
     Dates: start: 20040531, end: 20040629
  10. PLETAL [Suspect]
     Indication: CEREBRAL INFARCTION
     Dosage: 100 MG, BID, NASAL ; 100 MG, QD, NASAL ; 100 MG, BID, NASAL
     Route: 045
     Dates: start: 20040630, end: 20040630
  11. PLETAL [Suspect]
     Indication: CEREBRAL INFARCTION
     Dosage: 100 MG, BID, NASAL ; 100 MG, QD, NASAL ; 100 MG, BID, NASAL
     Route: 045
     Dates: start: 20040710, end: 20040818
  12. LASIX [Concomitant]
  13. BIOFERMIN (LACTOBACILLUS ACIDOPHILUS, BACILLUS SUBTILIS, STREPTOCOCCUS [Concomitant]
  14. NIVADIL (NILVADIPINE) [Concomitant]
  15. FAROM (FAROPENEM SODIUM) [Concomitant]
  16. ERYTHROCIN (ERYTHROMCYIN) [Concomitant]

REACTIONS (6)
  - PYELONEPHRITIS [None]
  - DECUBITUS ULCER [None]
  - GASTROINTESTINAL DISORDER [None]
  - CARDIAC FAILURE [None]
  - GENERAL PHYSICAL HEALTH DETERIORATION [None]
  - PNEUMONIA [None]
